FAERS Safety Report 20162312 (Version 1)
Quarter: 2021Q4

REPORT INFORMATION
  Report Type: Other
  Country: None (occurrence: AT)
  Receive Date: 20211208
  Receipt Date: 20211208
  Transmission Date: 20220303
  Serious: Yes (Other)
  Sender: FDA-Public Use
  Company Number: AT-Knight Therapeutics (USA) Inc.-2122816

PATIENT
  Age: 25 Month
  Sex: Male

DRUGS (6)
  1. IMPAVIDO [Suspect]
     Active Substance: MILTEFOSINE
     Indication: Acanthamoeba infection
  2. SULFAMETHOXAZOLE\TRIMETHOPRIM [Concomitant]
     Active Substance: SULFAMETHOXAZOLE\TRIMETHOPRIM
     Route: 042
  3. FLUCONAZOLE [Concomitant]
     Active Substance: FLUCONAZOLE
     Route: 042
  4. PENTAMIDINE [Concomitant]
     Active Substance: PENTAMIDINE
     Route: 042
  5. PHENOBARBITAL [Concomitant]
     Active Substance: PHENOBARBITAL
  6. granulocyte colony-stimulating factor (G-CSF) [Concomitant]

REACTIONS (3)
  - Pancreatitis [Unknown]
  - Drug effective for unapproved indication [Recovered/Resolved]
  - Off label use [Unknown]
